FAERS Safety Report 4485917-4 (Version None)
Quarter: 2004Q4

REPORT INFORMATION
  Report Type: 
  Country: None (occurrence: None)
  Receive Date: 20041020
  Receipt Date: 20041005
  Transmission Date: 20050328
  Serious: Yes (Other)
  Sender: FDA-Public Use
  Company Number: HQ9654627DEC2001

PATIENT
  Age: 39 Year
  Sex: Male

DRUGS (8)
  1. REFACTO [Suspect]
     Indication: FACTOR VIII DEFICIENCY
     Dosage: 4 IU/KG/HR, INTRAVENOUS
     Route: 042
     Dates: start: 20010723, end: 20010813
  2. MORPHINE SULFATE [Concomitant]
  3. VANCOMYCIN [Concomitant]
  4. ACETAMINOPHEN [Concomitant]
  5. TETRAZEPAM (TETRAZEPAM) [Concomitant]
  6. OMEPRAZOLE [Concomitant]
  7. AUGMENTIN (AMOXICILLIN SODIUM,/CLAVULANATE POTASSIUM) [Concomitant]
  8. OFLOXACIN [Concomitant]

REACTIONS (5)
  - ANAEMIA POSTOPERATIVE [None]
  - BRONCHITIS [None]
  - COAGULATION FACTOR VIII LEVEL DECREASED [None]
  - FEBRILE INFECTION [None]
  - POST PROCEDURAL HAEMORRHAGE [None]
